FAERS Safety Report 24318639 (Version 1)
Quarter: 2024Q3

REPORT INFORMATION
  Report Type: Spontaneous
  Country: ES (occurrence: ES)
  Receive Date: 20240913
  Receipt Date: 20240913
  Transmission Date: 20241016
  Serious: Yes (Other)
  Sender: MYLAN
  Company Number: ES-PFIZER INC-2020452894

PATIENT
  Age: 48 Year
  Sex: Female

DRUGS (16)
  1. VANCOMYCIN [Suspect]
     Active Substance: VANCOMYCIN
     Indication: Fasciitis
     Dosage: UNK
     Route: 065
  2. VANCOMYCIN [Suspect]
     Active Substance: VANCOMYCIN
     Indication: Pulmonary embolism
  3. VANCOMYCIN [Suspect]
     Active Substance: VANCOMYCIN
     Indication: Pneumonia
  4. VANCOMYCIN [Suspect]
     Active Substance: VANCOMYCIN
     Indication: Infection
  5. MEROPENEM [Suspect]
     Active Substance: MEROPENEM
     Indication: Pulmonary embolism
     Dosage: UNK
     Route: 065
  6. MEROPENEM [Suspect]
     Active Substance: MEROPENEM
     Indication: Fasciitis
  7. MEROPENEM [Suspect]
     Active Substance: MEROPENEM
     Indication: Pneumonia
  8. MEROPENEM [Suspect]
     Active Substance: MEROPENEM
     Indication: Infection
  9. AZTREONAM [Suspect]
     Active Substance: AZTREONAM
     Indication: Infection
     Dosage: UNK
     Route: 065
  10. AZTREONAM [Suspect]
     Active Substance: AZTREONAM
     Indication: Fasciitis
  11. AZTREONAM [Suspect]
     Active Substance: AZTREONAM
     Indication: Pulmonary embolism
  12. AZTREONAM [Suspect]
     Active Substance: AZTREONAM
     Indication: Pneumonia
  13. CLINDAMYCIN [Suspect]
     Active Substance: CLINDAMYCIN
     Indication: Pulmonary embolism
     Dosage: UNK
     Route: 065
  14. CLINDAMYCIN [Suspect]
     Active Substance: CLINDAMYCIN
     Indication: Fasciitis
  15. CLINDAMYCIN [Suspect]
     Active Substance: CLINDAMYCIN
     Indication: Infection
  16. CLINDAMYCIN [Suspect]
     Active Substance: CLINDAMYCIN
     Indication: Pneumonia

REACTIONS (1)
  - Drug ineffective [Unknown]
